FAERS Safety Report 8832968 (Version 1)
Quarter: 2012Q4

REPORT INFORMATION
  Report Type: 
  Country: SE (occurrence: SE)
  Receive Date: 20121010
  Receipt Date: 20121010
  Transmission Date: 20130627
  Serious: Yes (Hospitalization)
  Sender: FDA-Public Use
  Company Number: SE-PFIZER INC-2012244815

PATIENT
  Age: 74 Year
  Sex: Female

DRUGS (2)
  1. DETRUSITOL [Suspect]
     Dosage: UNK
  2. FLORINEF [Concomitant]
     Dosage: 0.1 mg, UNK

REACTIONS (1)
  - Hypotension [Unknown]
